FAERS Safety Report 13981603 (Version 1)
Quarter: 2017Q3

REPORT INFORMATION
  Report Type: Spontaneous
  Country: US (occurrence: US)
  Receive Date: 20170917
  Receipt Date: 20170917
  Transmission Date: 20171128
  Serious: Yes (Disabling)
  Sender: FDA-Public Use
  Company Number: None

PATIENT
  Age: 40 Year
  Sex: Female
  Weight: 63.9 kg

DRUGS (3)
  1. PRENATAL [Concomitant]
     Active Substance: VITAMINS
  2. LEVAQUIN [Suspect]
     Active Substance: LEVOFLOXACIN
     Indication: KLEBSIELLA TEST POSITIVE
     Dosage: ?          QUANTITY:9 TABLET(S);?
     Route: 048
     Dates: start: 20170816, end: 20170825
  3. LEVAQUIN [Suspect]
     Active Substance: LEVOFLOXACIN
     Indication: ESCHERICHIA TEST POSITIVE
     Dosage: ?          QUANTITY:9 TABLET(S);?
     Route: 048
     Dates: start: 20170816, end: 20170825

REACTIONS (6)
  - Hypoaesthesia [None]
  - Tendon pain [None]
  - Diarrhoea [None]
  - Tremor [None]
  - Arthralgia [None]
  - Paraesthesia [None]

NARRATIVE: CASE EVENT DATE: 20170818
